FAERS Safety Report 20688716 (Version 7)
Quarter: 2023Q2

REPORT INFORMATION
  Report Type: Report from Study
  Country: US (occurrence: US)
  Receive Date: 20220408
  Receipt Date: 20230608
  Transmission Date: 20230721
  Serious: Yes (Other)
  Sender: FDA-Public Use
  Company Number: US-002147023-NVSC2022US057555

PATIENT
  Sex: Female

DRUGS (1)
  1. COSENTYX [Suspect]
     Active Substance: SECUKINUMAB
     Indication: Psoriasis
     Dosage: 300 MG, QMO (EVERY 4 WEEKS)
     Route: 058

REACTIONS (6)
  - Lupus-like syndrome [Unknown]
  - Psoriasis [Recovered/Resolved]
  - Pain [Unknown]
  - Hidradenitis [Unknown]
  - Emotional distress [Unknown]
  - Drug ineffective [Unknown]
